FAERS Safety Report 6876047-2 (Version None)
Quarter: 2010Q3

REPORT INFORMATION
  Report Type: 
  Country: None (occurrence: None)
  Receive Date: 20100727
  Receipt Date: 20100715
  Transmission Date: 20110219
  Serious: Yes (Other)
  Sender: FDA-Public Use
  Company Number: JP-MERCK-1005USA04312

PATIENT
  Age: 60 Year
  Sex: Male

DRUGS (3)
  1. ZETIA [Suspect]
     Indication: HYPERLIPIDAEMIA
     Route: 048
     Dates: start: 20091117, end: 20100519
  2. RASILEZ [Suspect]
     Indication: HYPERTENSION
     Route: 048
     Dates: end: 20100519
  3. SELOKEN [Suspect]
     Indication: HYPERTENSION
     Route: 048
     Dates: start: 20091215, end: 20100519

REACTIONS (1)
  - INTERSTITIAL LUNG DISEASE [None]
